FAERS Safety Report 25715198 (Version 1)
Quarter: 2025Q3

REPORT INFORMATION
  Report Type: Report from Study
  Country: UY (occurrence: UY)
  Receive Date: 20250822
  Receipt Date: 20250822
  Transmission Date: 20251020
  Serious: Yes (Other)
  Sender: JOHNSON AND JOHNSON
  Company Number: UY-JNJFOC-20250725514

PATIENT
  Age: 62 Year
  Sex: Female
  Weight: 95 kg

DRUGS (1)
  1. SIMPONI [Suspect]
     Active Substance: GOLIMUMAB
     Indication: Rheumatoid arthritis
     Route: 058
     Dates: start: 20200201

REACTIONS (4)
  - Blood pressure increased [Recovering/Resolving]
  - Intervertebral disc protrusion [Recovering/Resolving]
  - Influenza [Recovering/Resolving]
  - Headache [Unknown]

NARRATIVE: CASE EVENT DATE: 20250101
